FAERS Safety Report 16395747 (Version 1)
Quarter: 2019Q2

REPORT INFORMATION
  Report Type: Spontaneous
  Country: ES (occurrence: ES)
  Receive Date: 20190605
  Receipt Date: 20190605
  Transmission Date: 20190711
  Serious: Yes (Other)
  Sender: FDA-Public Use
  Company Number: ES-ACELLA PHARMACEUTICALS, LLC-2067825

PATIENT
  Age: 55 Year
  Sex: Male

DRUGS (6)
  1. CEFEPIME [Suspect]
     Active Substance: CEFEPIME HYDROCHLORIDE
  2. ENOXAPARIN SODIUM. [Concomitant]
     Active Substance: ENOXAPARIN SODIUM
  3. PHENYTOIN SODIUM. [Suspect]
     Active Substance: PHENYTOIN SODIUM
     Indication: CEREBROVASCULAR ACCIDENT
  4. DIPYRONE [Concomitant]
     Active Substance: DIPYRONE
  5. CEFAZOLIN [Suspect]
     Active Substance: CEFAZOLIN
  6. MEROPENEM. [Concomitant]
     Active Substance: MEROPENEM

REACTIONS (7)
  - Rash [Recovering/Resolving]
  - Drug reaction with eosinophilia and systemic symptoms [Unknown]
  - Leukocytosis [Recovering/Resolving]
  - Pyrexia [Recovering/Resolving]
  - Face oedema [Recovering/Resolving]
  - Eosinophilia [Recovering/Resolving]
  - Hepatic enzyme increased [Recovering/Resolving]
